FAERS Safety Report 7283871-3 (Version None)
Quarter: 2011Q1

REPORT INFORMATION
  Report Type: 
  Country: None (occurrence: None)
  Receive Date: 20110209
  Receipt Date: 20110126
  Transmission Date: 20110831
  Serious: Yes (Other)
  Sender: FDA-Public Use
  Company Number: FR-PFIZER INC-2011015108

PATIENT
  Age: 58 Year
  Sex: Female

DRUGS (8)
  1. LOSARTAN [Concomitant]
  2. OMEPRAZOLE [Concomitant]
  3. SIROLIMUS [Interacting]
     Dosage: UNK
     Dates: start: 20021001, end: 20070801
  4. FUROSEMIDE [Concomitant]
  5. TROXERUTIN [Concomitant]
  6. TAHOR [Suspect]
  7. AZATHIOPRINE [Concomitant]
  8. DARBEPOETIN ALFA [Concomitant]

REACTIONS (2)
  - ORGANISING PNEUMONIA [None]
  - DRUG INTERACTION [None]
